FAERS Safety Report 4443849-1 (Version None)
Quarter: 2004Q3

REPORT INFORMATION
  Report Type: 
  Country: None (occurrence: None)
  Receive Date: 20040908
  Receipt Date: 20040901
  Transmission Date: 20050211
  Serious: Yes (Other)
  Sender: FDA-Public Use
  Company Number: PHRM2004FR02704

PATIENT
  Age: 40 Year
  Sex: Male

DRUGS (3)
  1. RITALIN [Suspect]
     Indication: DEPRESSION
     Dosage: 30 MG DAILY
     Route: 048
     Dates: end: 20040901
  2. ZOLOFT [Suspect]
  3. LITHIUM [Suspect]

REACTIONS (1)
  - BRADYCARDIA [None]
